FAERS Safety Report 8599166-1 (Version None)
Quarter: 2012Q3

REPORT INFORMATION
  Report Type: 
  Country: None (occurrence: None)
  Receive Date: 20120816
  Receipt Date: 20120719
  Transmission Date: 20120928
  Serious: Yes (Hospitalization)
  Sender: FDA-Public Use
  Company Number: FR-PFIZER INC-K201100613

PATIENT
  Age: 78 Year
  Sex: Male

DRUGS (13)
  1. ASPIRIN [Concomitant]
     Dosage: UNK
     Dates: start: 20110315
  2. LIPITOR [Concomitant]
     Dosage: UNK
     Dates: start: 20110314
  3. FAMOTIDINE [Concomitant]
     Dosage: UNK
     Dates: start: 20110314
  4. CEFTRIAXONE [Concomitant]
     Dosage: UNK
     Dates: start: 20110315, end: 20110322
  5. ALDACTONE [Suspect]
     Indication: PRODUCT USED FOR UNKNOWN INDICATION
     Dosage: UNK
     Route: 065
     Dates: start: 20110315
  6. DESAL [Suspect]
     Dosage: 80 MG, UNK
     Dates: start: 20110315
  7. PLAVIX [Concomitant]
     Dosage: UNK
     Dates: start: 20110314
  8. BISOPROLOL FUMARATE [Concomitant]
     Dosage: UNK
     Dates: start: 20120315
  9. GLYCERYL TRINITRATE [Concomitant]
     Dosage: UNK
     Dates: start: 20110314, end: 20110315
  10. INSULIN [Concomitant]
     Dosage: UNK
     Dates: start: 20110315, end: 20110321
  11. RAMIPRIL [Suspect]
     Dosage: 2.5 MG, DAILY
     Route: 048
     Dates: start: 20110315
  12. HEPARIN [Concomitant]
     Dosage: UNK
     Dates: start: 20110314, end: 20110315
  13. DESAL [Suspect]
     Indication: PRODUCT USED FOR UNKNOWN INDICATION
     Dosage: 20 MG, DAILY
     Dates: start: 20110314

REACTIONS (1)
  - RENAL FAILURE CHRONIC [None]
